FAERS Safety Report 5205360-X (Version None)
Quarter: 2007Q1

REPORT INFORMATION
  Report Type: 
  Country: None (occurrence: None)
  Receive Date: 20070108
  Receipt Date: 20070102
  Transmission Date: 20070707
  Serious: Yes (Life-Threatening, Other)
  Sender: FDA-Public Use
  Company Number: 2006SP006717

PATIENT
  Age: 79 Year
  Sex: Male
  Weight: 99.7913 kg

DRUGS (3)
  1. CLARINEX [Suspect]
     Indication: RASH PRURITIC
     Dosage: 5 MG; QD
  2. PRANDIN (CON.) [Concomitant]
  3. DIOVAN (CON.) [Concomitant]

REACTIONS (4)
  - IMPAIRED DRIVING ABILITY [None]
  - LOSS OF CONSCIOUSNESS [None]
  - ROAD TRAFFIC ACCIDENT [None]
  - SOMNOLENCE [None]
